FAERS Safety Report 8843885 (Version 3)
Quarter: 2012Q4

REPORT INFORMATION
  Report Type: 
  Country: FR (occurrence: DZ)
  Receive Date: 20121016
  Receipt Date: 20121101
  Transmission Date: 20130627
  Serious: Yes (Life-Threatening, Hospitalization)
  Sender: FDA-Public Use
  Company Number: DZ-MYLANLABS-2012S1021248

PATIENT
  Age: 41 Month
  Sex: Male

DRUGS (6)
  1. CYSTAGON [Suspect]
     Indication: CYSTINOSIS
     Route: 048
     Dates: start: 20120719, end: 20120820
  2. CYSTAGON [Suspect]
     Indication: CYSTINOSIS
     Route: 048
     Dates: start: 20120904
  3. PHOSPHORE /00859901/ [Concomitant]
     Indication: BLOOD PHOSPHORUS DECREASED
     Dosage: mg/m2/day
     Dates: start: 20120521
  4. INDOMETACINE [Concomitant]
     Dates: start: 20120521
  5. BICARBONATE [Concomitant]
     Indication: ACIDOSIS
     Dosage: 15mgq/kg/day
     Dates: start: 20120521
  6. KALIGAN [Concomitant]
     Dosage: 4me/kg/qd
     Dates: start: 20120521

REACTIONS (3)
  - Nephrotic syndrome [Not Recovered/Not Resolved]
  - Face oedema [Not Recovered/Not Resolved]
  - Proteinuria [Not Recovered/Not Resolved]
